FAERS Safety Report 5242142-7 (Version None)
Quarter: 2007Q1

REPORT INFORMATION
  Report Type: 
  Country: None (occurrence: None)
  Receive Date: 20070212
  Receipt Date: 20070129
  Transmission Date: 20070707
  Serious: Yes (Hospitalization)
  Sender: FDA-Public Use
  Company Number: 2006BI016360

PATIENT
  Age: 51 Year
  Sex: Female

DRUGS (7)
  1. AVONEX [Suspect]
     Indication: MULTIPLE SCLEROSIS
     Dosage: 30 UG;QW; IM
     Route: 030
     Dates: start: 19990101, end: 20030101
  2. AVONEX [Suspect]
     Indication: MULTIPLE SCLEROSIS
     Dosage: 30 UG;QW; IM
     Route: 030
     Dates: start: 20030101
  3. CLIMARA PRO PATCH [Concomitant]
  4. SYNTHROID [Concomitant]
  5. CENTRUM [Concomitant]
  6. SINGULAIR [Concomitant]
  7. ASPIRIN [Concomitant]

REACTIONS (2)
  - MENOPAUSE [None]
  - VAGINAL HAEMORRHAGE [None]
